FAERS Safety Report 13494041 (Version 1)
Quarter: 2017Q2

REPORT INFORMATION
  Report Type: Spontaneous
  Country: US (occurrence: US)
  Receive Date: 20170427
  Receipt Date: 20170427
  Transmission Date: 20170830
  Serious: No
  Sender: FDA-Public Use
  Company Number: US-ALKERMES INC.-ALK-2016-001681

PATIENT
  Sex: Male

DRUGS (1)
  1. VIVITROL [Suspect]
     Active Substance: NALTREXONE
     Indication: ALCOHOLISM
     Dosage: 380 MG, QMO
     Route: 030
     Dates: start: 20160609

REACTIONS (4)
  - Injection site reaction [Unknown]
  - Injection site bruising [Unknown]
  - Drug administered at inappropriate site [Recovered/Resolved]
  - Malabsorption from injection site [Unknown]

NARRATIVE: CASE EVENT DATE: 201606
